FAERS Safety Report 4533553-3 (Version None)
Quarter: 2004Q4

REPORT INFORMATION
  Report Type: 
  Country: None (occurrence: None)
  Receive Date: 20041221
  Receipt Date: 20041021
  Transmission Date: 20050328
  Serious: Yes (Hospitalization, Other)
  Sender: FDA-Public Use
  Company Number: PHNU2004DE03580

PATIENT
  Age: 4 Year
  Sex: Male
  Weight: 16 kg

DRUGS (3)
  1. ANTINEOPLASTIC AGENTS [Suspect]
     Route: 065
  2. RITALIN [Suspect]
     Indication: ATTENTION DEFICIT/HYPERACTIVITY DISORDER
     Dosage: 5 MG, BID
     Route: 048
     Dates: start: 20040914, end: 20041018
  3. METHOTREXATE [Concomitant]
     Indication: ACUTE LYMPHOCYTIC LEUKAEMIA
     Dosage: UNKNOWN
     Route: 065

REACTIONS (11)
  - ALANINE AMINOTRANSFERASE INCREASED [None]
  - ASPARTATE AMINOTRANSFERASE INCREASED [None]
  - ATTENTION DEFICIT/HYPERACTIVITY DISORDER [None]
  - BLOOD BILIRUBIN INCREASED [None]
  - BLOOD CREATINE PHOSPHOKINASE INCREASED [None]
  - DRUG EFFECT DECREASED [None]
  - DRUG INEFFECTIVE [None]
  - GAMMA-GLUTAMYLTRANSFERASE INCREASED [None]
  - TRANSAMINASES INCREASED [None]
  - VOMITING [None]
  - WEIGHT DECREASED [None]
